FAERS Safety Report 13281906 (Version 1)
Quarter: 2017Q1

REPORT INFORMATION
  Report Type: Spontaneous
  Country: US (occurrence: US)
  Receive Date: 20170301
  Receipt Date: 20170301
  Transmission Date: 20170428
  Serious: No
  Sender: FDA-Public Use
  Company Number: US-FERRINGPH-2016FE01078

PATIENT
  Sex: Male
  Weight: 79.37 kg

DRUGS (1)
  1. DDAVP [Suspect]
     Active Substance: DESMOPRESSIN ACETATE
     Indication: DIABETES INSIPIDUS
     Dosage: 7 SPRAYS AT BEDTIME EVERY NIGHT
     Route: 045

REACTIONS (2)
  - Product use issue [Unknown]
  - Underdose [Unknown]
